FAERS Safety Report 6431702-3 (Version None)
Quarter: 2009Q4

REPORT INFORMATION
  Report Type: 
  Country: None (occurrence: None)
  Receive Date: 20091103
  Receipt Date: 20091019
  Transmission Date: 20100525
  Serious: Yes (Hospitalization)
  Sender: FDA-Public Use
  Company Number: 02100-JPN-05-0522

PATIENT
  Age: 68 Year
  Sex: Male
  Weight: 59.5 kg

DRUGS (9)
  1. PLETAL [Suspect]
     Indication: CEREBRAL INFARCTION
     Dosage: 81 MG, QD ORAL
     Route: 048
     Dates: start: 20050114, end: 20051014
  2. METHYCOBAL (MECOBALAMIN) [Concomitant]
  3. ADOFEED (FLURIPROFEN) [Concomitant]
  4. MAGNESIUM OXIDE (MAGNESIUM OXIDE) [Concomitant]
  5. BULKOSE (CARMELLOSE SODIUM) [Concomitant]
  6. PANALDINE (TICLOPIDINE HYDOCHLORIDE) [Concomitant]
  7. LOSARTAN POTASSIUM [Concomitant]
  8. ASPIRIN [Concomitant]
  9. LIPITOR [Concomitant]

REACTIONS (3)
  - CARDIAC ANEURYSM [None]
  - CARDIAC FAILURE [None]
  - MYOCARDIAL INFARCTION [None]
